FAERS Safety Report 4436277-6 (Version None)
Quarter: 2004Q3

REPORT INFORMATION
  Report Type: 
  Country: None (occurrence: None)
  Receive Date: 20040830
  Receipt Date: 20040623
  Transmission Date: 20050211
  Serious: No
  Sender: FDA-Public Use
  Company Number: US-BRISTOL-MYERS SQUIBB COMPANY-12623799

PATIENT
  Age: 47 Year
  Sex: Female
  Weight: 91 kg

DRUGS (8)
  1. ERBITUX [Suspect]
     Indication: COLON CANCER METASTATIC
     Route: 042
     Dates: start: 20040415, end: 20040415
  2. BENADRYL [Concomitant]
     Indication: PREMEDICATION
     Route: 042
     Dates: start: 20040415, end: 20040415
  3. DEXAMETHASONE [Concomitant]
     Indication: PREMEDICATION
     Route: 042
     Dates: start: 20040415, end: 20040415
  4. KYTRIL [Concomitant]
     Indication: PREMEDICATION
     Route: 048
     Dates: start: 20040415, end: 20040415
  5. COMPAZINE [Concomitant]
  6. IRINOTECAN [Concomitant]
     Indication: CHEMOTHERAPY
  7. PERCOCET [Concomitant]
  8. XANAX [Concomitant]

REACTIONS (2)
  - RASH [None]
  - THROAT TIGHTNESS [None]
